FAERS Safety Report 4525456-5 (Version None)
Quarter: 2004Q4

REPORT INFORMATION
  Report Type: 
  Country: None (occurrence: None)
  Receive Date: 20041213
  Receipt Date: 20041124
  Transmission Date: 20050328
  Serious: Yes (Other)
  Sender: FDA-Public Use
  Company Number: BR-JNJFOC-20041202707

PATIENT

DRUGS (3)
  1. TOPAMAX [Suspect]
     Indication: MATERNAL DRUGS AFFECTING FOETUS
     Dosage: 50-100 MG TRANSPLACENTAL/TRANSMAMMRY DAILY
  2. CARBAMAZEPINE [Concomitant]
     Indication: EPILEPSY
     Dosage: TRANSPLACENTAL/TRANSMAMMARY
  3. URBANIL [Concomitant]
     Indication: EPILEPSY
     Dosage: TRANSPLACENTAL/TRANSMAMMARY
     Route: 064

REACTIONS (2)
  - DEVELOPMENTAL DELAY [None]
  - MATERNAL DRUGS AFFECTING FOETUS [None]
